FAERS Safety Report 6343275-4 (Version None)
Quarter: 2009Q3

REPORT INFORMATION
  Report Type: 
  Country: None (occurrence: None)
  Receive Date: 20090908
  Receipt Date: 20090827
  Transmission Date: 20100115
  Serious: Yes (Hospitalization)
  Sender: FDA-Public Use
  Company Number: PHHY2009JP33492

PATIENT
  Sex: Male

DRUGS (9)
  1. AMN107 AMN+CAP [Suspect]
     Indication: CHRONIC MYELOID LEUKAEMIA
     Dosage: 200 MG/DAY
     Route: 048
     Dates: start: 20090410, end: 20090727
  2. GLEEVEC [Suspect]
     Indication: CHRONIC MYELOID LEUKAEMIA
     Dosage: 200 MG/DAY
     Dates: start: 20040301, end: 20090409
  3. ALOSITOL [Concomitant]
     Dosage: 100 MG, UNK
     Route: 048
     Dates: start: 20090827
  4. GASMOTIN [Concomitant]
     Dosage: 15 MG, UNK
     Route: 048
     Dates: start: 20090827
  5. METHYCOBAL [Concomitant]
     Dosage: 150 UG, UNK
     Route: 048
     Dates: start: 20090827
  6. LENDORMIN [Concomitant]
     Dosage: 0.25 MG, UNK
     Route: 048
     Dates: start: 20090827
  7. ALLOID [Concomitant]
     Dosage: 3 DF, UNK
     Route: 048
     Dates: start: 20090827
  8. TOUGHMAC E [Concomitant]
     Dosage: 3 DF, UNK
     Route: 048
     Dates: start: 20090827
  9. WARFARIN SODIUM [Concomitant]
     Route: 048

REACTIONS (1)
  - ATRIAL FIBRILLATION [None]
